FAERS Safety Report 24266820 (Version 1)
Quarter: 2024Q3

REPORT INFORMATION
  Report Type: Spontaneous
  Country: CA (occurrence: CA)
  Receive Date: 20240830
  Receipt Date: 20240830
  Transmission Date: 20241016
  Serious: Yes (Hospitalization)
  Sender: ROCHE
  Company Number: CA-ROCHE-10000066112

PATIENT
  Age: 66 Year
  Sex: Male

DRUGS (11)
  1. RITUXAN [Suspect]
     Active Substance: RITUXIMAB
     Indication: Product used for unknown indication
     Route: 042
  2. ONCOVIN [Suspect]
     Active Substance: VINCRISTINE SULFATE
     Indication: Product used for unknown indication
     Route: 065
  3. CYTOXAN [Suspect]
     Active Substance: CYCLOPHOSPHAMIDE
     Indication: Product used for unknown indication
     Route: 065
  4. ADRIAMYCIN [Suspect]
     Active Substance: DOXORUBICIN HYDROCHLORIDE
     Indication: Diffuse large B-cell lymphoma
     Route: 042
  5. CODEINE PHOSPHATE [Concomitant]
     Active Substance: CODEINE PHOSPHATE
  6. JARDIANCE [Concomitant]
     Active Substance: EMPAGLIFLOZIN
  7. MORPHINE SULFATE [Concomitant]
     Active Substance: MORPHINE SULFATE
     Indication: Diffuse large B-cell lymphoma
     Route: 042
  8. ONDANSETRON [Concomitant]
     Active Substance: ONDANSETRON
  9. PERINDOPRIL [Concomitant]
     Active Substance: PERINDOPRIL
  10. ROSUVASTATIN [Concomitant]
     Active Substance: ROSUVASTATIN\ROSUVASTATIN CALCIUM
  11. ZOPICLONE [Concomitant]
     Active Substance: ZOPICLONE

REACTIONS (4)
  - Anaemia [Recovering/Resolving]
  - Haemoglobinaemia [Recovering/Resolving]
  - Neutropenia [Recovering/Resolving]
  - Transfusion [Recovering/Resolving]
